FAERS Safety Report 9943298 (Version 2)
Quarter: 2014Q2

REPORT INFORMATION
  Report Type: Report from Study
  Country: JP (occurrence: JP)
  Receive Date: 20140303
  Receipt Date: 20140403
  Transmission Date: 20141212
  Serious: Yes (Hospitalization, Other)
  Sender: FDA-Public Use
  Company Number: JP-TAKEDA-2014TUS001459

PATIENT
  Sex: 0

DRUGS (28)
  1. FEBURIC [Suspect]
     Indication: GOUT
     Dosage: 10 MG, QD
     Route: 048
     Dates: start: 20121103, end: 20121221
  2. FEBURIC [Suspect]
     Dosage: 20 MG, QD
     Route: 048
     Dates: start: 20121222
  3. BAYASPIRIN [Concomitant]
     Indication: CEREBRAL INFARCTION
     Dosage: 100 MG, QD
     Route: 048
     Dates: start: 20040131, end: 20130402
  4. BAYASPIRIN [Concomitant]
     Dosage: 100 MG
     Route: 048
     Dates: start: 20130418
  5. LASIX                              /00032601/ [Concomitant]
     Indication: IGA NEPHROPATHY
     Dosage: 20 MG, QD
     Route: 048
     Dates: start: 20100205
  6. MAINTATE [Concomitant]
     Indication: HYPERTENSION
     Dosage: 2.5 MG, QD
     Route: 048
     Dates: start: 20061027
  7. LIPITOR [Concomitant]
     Indication: HYPERLIPIDAEMIA
     Dosage: 10 MG, QD
     Route: 048
     Dates: start: 20120907
  8. OLMETEC [Concomitant]
     Indication: HYPERTENSION
     Dosage: 40 MG, QD
     Route: 048
     Dates: start: 20060714
  9. NORVASC [Concomitant]
     Indication: HYPERTENSION
     Dosage: 10 MG, QD
     Route: 048
     Dates: start: 20070112, end: 20130422
  10. CARDENALIN [Concomitant]
     Indication: HYPERTENSION
     Dosage: 4 MG, QD
     Route: 048
     Dates: start: 20060113
  11. NOVORAPID MIX [Concomitant]
     Indication: DIABETES MELLITUS
     Dosage: 40 IU, QD
     Dates: start: 20091110
  12. TAKEPRON [Concomitant]
     Indication: DUODENAL ULCER HAEMORRHAGE
     Dosage: 15 MG, QD
     Route: 048
     Dates: start: 20091027
  13. NEXIUM                             /01479302/ [Concomitant]
     Indication: HELICOBACTER INFECTION
     Dosage: 40 MG, QD
     Route: 048
     Dates: start: 20130315, end: 20130321
  14. SAWACILLIN [Concomitant]
     Indication: HELICOBACTER INFECTION
     Dosage: 1500 MG, QD
     Route: 048
     Dates: start: 20130315, end: 20130321
  15. FLAGYL                             /00012501/ [Concomitant]
     Indication: HELICOBACTER INFECTION
     Dosage: 500 MG, QD
     Route: 048
     Dates: start: 20130315, end: 20130321
  16. CILOSTAZOL [Concomitant]
     Indication: CEREBRAL INFARCTION
     Dosage: 200 MG, QD
     Route: 048
     Dates: start: 20130403, end: 20130414
  17. MAGTECT [Concomitant]
     Indication: GASTROINTESTINAL ENDOSCOPIC THERAPY
     Dosage: 30 MG, QD
     Route: 048
     Dates: start: 20130416, end: 20130418
  18. ALLOID G [Concomitant]
     Indication: GASTROINTESTINAL ENDOSCOPIC THERAPY
     Dosage: 90 MG, QD
     Route: 048
     Dates: start: 20130416, end: 20130418
  19. MUCOSTA [Concomitant]
     Indication: GASTROINTESTINAL ENDOSCOPIC THERAPY
     Dosage: 200 MG, QD
     Route: 048
     Dates: start: 20130417, end: 20130510
  20. SULBACTAM SODIUM [Concomitant]
     Indication: GASTROINTESTINAL ENDOSCOPIC THERAPY
     Dosage: 3.0 G, QD
     Route: 048
     Dates: start: 20130415, end: 20130417
  21. BUSCOPAN [Concomitant]
     Indication: GASTROINTESTINAL ENDOSCOPIC THERAPY
     Dosage: 20 MG, QD
     Route: 048
     Dates: start: 20130415, end: 20130415
  22. DORMICUM                           /00036201/ [Concomitant]
     Indication: GASTROINTESTINAL ENDOSCOPIC THERAPY
     Dosage: 2 MG, QD
     Route: 048
     Dates: start: 20130415, end: 20130415
  23. LEPETAN [Concomitant]
     Indication: GASTROINTESTINAL ENDOSCOPIC THERAPY
     Dosage: 0.1 MG, QD
     Route: 048
     Dates: start: 20130415, end: 20130415
  24. TAKEPRON [Concomitant]
     Indication: GASTROINTESTINAL ENDOSCOPIC THERAPY
     Dosage: 60 MG, QD
     Route: 042
     Dates: start: 20130415, end: 20130417
  25. LAXOBERON [Concomitant]
     Indication: ENDOSCOPY LARGE BOWEL
     Dosage: 10 MG, QD
     Route: 048
     Dates: start: 20131210, end: 20131210
  26. NIFLEC [Concomitant]
     Indication: ENDOSCOPY LARGE BOWEL
     Dosage: 137.155 G, QD
     Route: 048
     Dates: start: 20131211, end: 20131211
  27. AMLODIN [Concomitant]
     Indication: HYPERTENSION
     Dosage: 10 MG, QD
     Route: 048
     Dates: start: 20130422
  28. LINAGLIPTIN [Concomitant]
     Indication: DIABETES MELLITUS
     Dosage: 5 MG, QD
     Route: 048
     Dates: start: 20130904

REACTIONS (2)
  - Gastric cancer [Recovering/Resolving]
  - Helicobacter infection [Unknown]
